FAERS Safety Report 5850860-2 (Version None)
Quarter: 2008Q3

REPORT INFORMATION
  Report Type: 
  Country: None (occurrence: None)
  Receive Date: 20080819
  Receipt Date: 20080819
  Transmission Date: 20090109
  Serious: Yes (Hospitalization)
  Sender: FDA-Public Use
  Company Number: None

PATIENT
  Sex: Female
  Weight: 62 kg

DRUGS (11)
  1. CARBOPLATIN [Suspect]
     Dosage: 440 MG
     Dates: end: 20080718
  2. TAXOTERE [Suspect]
     Dosage: 118 MG
     Dates: end: 20080718
  3. ASPIRIN [Concomitant]
  4. COZAAR [Concomitant]
  5. GLYBURIDE [Concomitant]
  6. IMDUR [Concomitant]
  7. LASIX [Concomitant]
  8. NEXIUM [Concomitant]
  9. PROCHLORPERAZINE [Concomitant]
  10. TOPROL-XL [Concomitant]
  11. ZOCOR [Concomitant]

REACTIONS (6)
  - CEREBROVASCULAR ACCIDENT [None]
  - GASTROINTESTINAL MOTILITY DISORDER [None]
  - HYPERGLYCAEMIA [None]
  - INTESTINAL OBSTRUCTION [None]
  - NEUROPATHY PERIPHERAL [None]
  - TACHYCARDIA [None]
